FAERS Safety Report 25224070 (Version 2)
Quarter: 2025Q2

REPORT INFORMATION
  Report Type: Report from Study
  Country: SA (occurrence: SA)
  Receive Date: 20250422
  Receipt Date: 20250523
  Transmission Date: 20250716
  Serious: Yes (Life-Threatening, Hospitalization, Other)
  Sender: ULTRAGENYX PHARMACEUTICAL
  Company Number: SA-ULTRAGENYX PHARMACEUTICAL INC.-SA-UGX-25-00749

PATIENT
  Age: 1 Year
  Sex: Male

DRUGS (2)
  1. DOJOLVI [Suspect]
     Active Substance: TRIHEPTANOIN
     Indication: Very long-chain acyl-coenzyme A dehydrogenase deficiency
  2. SKIM MILK [Concomitant]
     Indication: Nutritional supplementation

REACTIONS (5)
  - Upper respiratory tract infection [Unknown]
  - Mastoiditis [Unknown]
  - Hypoventilation [Unknown]
  - Hypotonia [Unknown]
  - Muscle spasticity [Unknown]
